FAERS Safety Report 8494875-7 (Version None)
Quarter: 2012Q3

REPORT INFORMATION
  Report Type: 
  Country: None (occurrence: None)
  Receive Date: 20120709
  Receipt Date: 20120629
  Transmission Date: 20120928
  Serious: Yes (Hospitalization)
  Sender: FDA-Public Use
  Company Number: 2012SP001853

PATIENT
  Age: 16 Year
  Sex: Female

DRUGS (4)
  1. ZOLOFT [Concomitant]
     Indication: DEPRESSION
     Dates: start: 20120609, end: 20120618
  2. ZYPREXA [Concomitant]
     Indication: MOOD SWINGS
     Dates: end: 20120601
  3. ZOLOFT [Concomitant]
     Dates: start: 20120608, end: 20120609
  4. LATUDA [Suspect]
     Indication: MOOD SWINGS
     Route: 048
     Dates: start: 20120608, end: 20120618

REACTIONS (1)
  - SEROTONIN SYNDROME [None]
